FAERS Safety Report 20488525 (Version 10)
Quarter: 2023Q2

REPORT INFORMATION
  Report Type: Spontaneous
  Country: JP (occurrence: JP)
  Receive Date: 20220218
  Receipt Date: 20230523
  Transmission Date: 20230721
  Serious: Yes (Death, Life-Threatening, Hospitalization, Other)
  Sender: FDA-Public Use
  Company Number: JP-ONO-2022JP004127

PATIENT
  Age: 48 Year
  Sex: Female
  Weight: 54.8 kg

DRUGS (7)
  1. OPDIVO [Suspect]
     Active Substance: NIVOLUMAB
     Indication: Malignant melanoma
     Route: 041
     Dates: start: 20210120, end: 20210318
  2. MEROPENEM [Suspect]
     Active Substance: MEROPENEM
     Indication: Pyelonephritis
     Route: 042
     Dates: start: 20210325, end: 20210325
  3. MEROPENEM [Suspect]
     Active Substance: MEROPENEM
     Dosage: 4G/DAY, TID
     Route: 042
     Dates: start: 20210326, end: 20210326
  4. MEROPENEM [Suspect]
     Active Substance: MEROPENEM
     Dosage: 2 G, Q8H
     Route: 042
     Dates: start: 20210327, end: 20210403
  5. MEROPENEM [Suspect]
     Active Substance: MEROPENEM
     Dosage: 2 G, EVERYDAY
     Route: 042
     Dates: start: 20210404, end: 20210404
  6. PIPERACILLIN SODIUM\TAZOBACTAM SODIUM [Suspect]
     Active Substance: PIPERACILLIN SODIUM\TAZOBACTAM SODIUM
     Indication: Pyelonephritis
     Dosage: 4.5 MG, Q12H
     Route: 042
     Dates: start: 20210325, end: 20210325
  7. PIPERACILLIN SODIUM\TAZOBACTAM SODIUM [Suspect]
     Active Substance: PIPERACILLIN SODIUM\TAZOBACTAM SODIUM
     Dosage: 4.5 MG, EVERYDAY
     Route: 042
     Dates: start: 20210406, end: 20210407

REACTIONS (7)
  - Cytokine release syndrome [Recovering/Resolving]
  - Pyelonephritis [Recovered/Resolved]
  - Disseminated intravascular coagulation [Unknown]
  - Escherichia bacteraemia [Unknown]
  - Anaemia [Unknown]
  - Malignant neoplasm progression [Fatal]
  - Haemophagocytic lymphohistiocytosis [Unknown]

NARRATIVE: CASE EVENT DATE: 20210324
